FAERS Safety Report 16640559 (Version 1)
Quarter: 2019Q3

REPORT INFORMATION
  Report Type: Spontaneous
  Country: FR (occurrence: FR)
  Receive Date: 20190729
  Receipt Date: 20190729
  Transmission Date: 20191004
  Serious: Yes (Hospitalization)
  Sender: FDA-Public Use
  Company Number: FR-ACCORD-149321

PATIENT
  Age: 82 Year
  Sex: Female
  Weight: 50 kg

DRUGS (8)
  1. ATORVASTATIN [Concomitant]
     Active Substance: ATORVASTATIN
  2. LANTUS [Concomitant]
     Active Substance: INSULIN GLARGINE
  3. COUMADINE [Concomitant]
     Active Substance: WARFARIN SODIUM
     Dosage: STRENGTH: 2 MG
  4. SITAGLIPTIN/SITAGLIPTIN PHOSPHATE [Concomitant]
  5. METFORMIN [Concomitant]
     Active Substance: METFORMIN HYDROCHLORIDE
  6. CORGARD [Concomitant]
     Active Substance: NADOLOL
     Dosage: STRENGTH:  80 MG
  7. RAMIPRIL. [Suspect]
     Active Substance: RAMIPRIL
     Indication: PRODUCT USED FOR UNKNOWN INDICATION
     Route: 048
     Dates: end: 20190710
  8. AMISULPRIDE [Suspect]
     Active Substance: AMISULPRIDE
     Indication: PSYCHOTIC DISORDER
     Route: 048
     Dates: start: 2013, end: 20190701

REACTIONS (2)
  - Inappropriate antidiuretic hormone secretion [Recovering/Resolving]
  - Hyponatraemia [Recovering/Resolving]

NARRATIVE: CASE EVENT DATE: 20190701
